FAERS Safety Report 23680182 (Version 1)
Quarter: 2024Q1

REPORT INFORMATION
  Report Type: Report from Study
  Country: US (occurrence: US)
  Receive Date: 20240327
  Receipt Date: 20240327
  Transmission Date: 20240409
  Serious: Yes (Death)
  Sender: FDA-Public Use
  Company Number: US-JNJFOC-20240366244

PATIENT
  Age: 55 Year
  Sex: Male

DRUGS (1)
  1. CILTACABTAGENE AUTOLEUCEL [Suspect]
     Active Substance: CILTACABTAGENE AUTOLEUCEL
     Indication: Plasma cell myeloma
     Dosage: TOTAL NUMBER OF CELLS ADMINISTERED:48.5?TOTAL CELLS EXPONENT VALUE 6?# OF PRIOR LINES PRIOR TO CARVY
     Route: 065
     Dates: start: 2023

REACTIONS (3)
  - Sepsis [Fatal]
  - Bacteraemia [Fatal]
  - Pulmonary mucormycosis [Fatal]
